FAERS Safety Report 24395410 (Version 1)
Quarter: 2024Q4

REPORT INFORMATION
  Report Type: Spontaneous
  Country: IN (occurrence: IN)
  Receive Date: 20241004
  Receipt Date: 20241004
  Transmission Date: 20250115
  Serious: Yes (Life-Threatening, Hospitalization, Other)
  Sender: ACCORD
  Company Number: IN-MLMSERVICE-20240918-PI194380-00275-1

PATIENT
  Age: 48 Year
  Sex: Male

DRUGS (2)
  1. QUETIAPINE [Suspect]
     Active Substance: QUETIAPINE
     Indication: Schizophrenia
     Dosage: TAKING FOR THE LAST TWO YEARS.
  2. CHLORPROMAZINE [Suspect]
     Active Substance: CHLORPROMAZINE
     Indication: Schizophrenia
     Dosage: TAKING FOR THE LAST TWO YEARS.

REACTIONS (4)
  - Renal tubular disorder [Recovering/Resolving]
  - Rhabdomyolysis [Recovering/Resolving]
  - Neuroleptic malignant syndrome [Recovering/Resolving]
  - Loss of consciousness [Recovered/Resolved]
